FAERS Safety Report 21219712 (Version 3)
Quarter: 2024Q2

REPORT INFORMATION
  Report Type: Spontaneous
  Country: US (occurrence: US)
  Receive Date: 20220817
  Receipt Date: 20240608
  Transmission Date: 20240716
  Serious: Yes (Hospitalization, Other)
  Sender: FDA-Public Use
  Company Number: US-MLMSERVICE-20220801-3708864-1

PATIENT
  Age: 42 Year
  Sex: Female

DRUGS (12)
  1. DULOXETINE [Interacting]
     Active Substance: DULOXETINE
     Indication: Major depression
     Dosage: 60 MILLIGRAM, TWO TIMES A DAY
     Route: 065
  2. DULOXETINE [Interacting]
     Active Substance: DULOXETINE
     Dosage: 30 MILLIGRAM, TWO TIMES A DAY
     Route: 065
  3. NORTRIPTYLINE [Interacting]
     Active Substance: NORTRIPTYLINE
     Indication: Major depression
     Dosage: 150 MILLIGRAM, ONCE A DAY
     Route: 065
  4. NORTRIPTYLINE [Interacting]
     Active Substance: NORTRIPTYLINE
     Dosage: 50 MILLIGRAM, ONCE A DAY (TAPPERED)
     Route: 065
  5. NORTRIPTYLINE [Interacting]
     Active Substance: NORTRIPTYLINE
     Dosage: 75 MILLIGRAM, ONCE A DAY (TAPPERED)
     Route: 065
  6. BUSPIRONE HYDROCHLORIDE [Interacting]
     Active Substance: BUSPIRONE HYDROCHLORIDE
     Indication: Product used for unknown indication
     Dosage: 5 MILLIGRAM, 3 TIMES A DAY
     Route: 065
  7. BUSPIRONE HYDROCHLORIDE [Interacting]
     Active Substance: BUSPIRONE HYDROCHLORIDE
     Dosage: 5 MILLIGRAM (SINGLE DOSE)
     Route: 065
  8. METOCLOPRAMIDE [Interacting]
     Active Substance: METOCLOPRAMIDE
     Indication: Vomiting
     Dosage: 10 MILLIGRAM, FOUR TIMES/DAY
     Route: 065
  9. METOCLOPRAMIDE [Interacting]
     Active Substance: METOCLOPRAMIDE
     Indication: Nausea
     Dosage: 10 MILLIGRAM, FOUR TIMES/DAY
     Route: 042
  10. METOCLOPRAMIDE [Interacting]
     Active Substance: METOCLOPRAMIDE
     Dosage: 10 MILLIGRAM, 3 TIMES A DAY
     Route: 065
  11. OXYGEN [Concomitant]
     Active Substance: OXYGEN
     Indication: Asthma
     Dosage: HOME OXYGEN
     Route: 065
  12. BENZTROPINE [Concomitant]
     Active Substance: BENZTROPINE
     Indication: Product used for unknown indication
     Dosage: UNK
     Route: 030

REACTIONS (5)
  - Oculogyric crisis [Recovered/Resolved]
  - Serotonin syndrome [Recovered/Resolved]
  - Drug interaction [Recovered/Resolved]
  - Hallucination [Unknown]
  - Dystonia [Recovered/Resolved]
